FAERS Safety Report 5989683-2 (Version None)
Quarter: 2008Q4

REPORT INFORMATION
  Report Type: 
  Country: None (occurrence: None)
  Receive Date: 20081210
  Receipt Date: 20081107
  Transmission Date: 20090506
  Serious: Yes (Other)
  Sender: FDA-Public Use
  Company Number: US-GENENTECH-273358

PATIENT

DRUGS (1)
  1. AVASTIN [Suspect]
     Indication: MACULAR DEGENERATION
     Dosage: 1.25 MG, UNK
     Route: 031

REACTIONS (2)
  - TOXIC ANTERIOR SEGMENT SYNDROME [None]
  - UVEITIS [None]
